FAERS Safety Report 5689302-9 (Version None)
Quarter: 2008Q1

REPORT INFORMATION
  Report Type: 
  Country: None (occurrence: None)
  Receive Date: 20080331
  Receipt Date: 20080325
  Transmission Date: 20080703
  Serious: Yes (Other)
  Sender: FDA-Public Use
  Company Number: US-BOEHRINGER INGELHEIM GMBH, GERMANY-2008-BP-04581RO

PATIENT
  Age: 50 Year
  Sex: Male

DRUGS (10)
  1. OXANDROLONE [Suspect]
     Indication: CACHEXIA
     Dates: start: 19991201, end: 20030101
  2. TESTOSTERONE [Suspect]
     Indication: HYPOGONADISM
     Route: 062
     Dates: start: 19991001, end: 20030101
  3. METHADON HCL TAB [Concomitant]
     Indication: PAIN
  4. AMITRIPTYLINE HCL [Concomitant]
     Indication: DEPRESSION
  5. ESCITALOPRAM OXALATE [Concomitant]
     Indication: DEPRESSION
  6. ZIDOVUDINE [Concomitant]
     Indication: ANTIRETROVIRAL THERAPY
  7. LAMIVUDINE [Concomitant]
     Indication: ANTIRETROVIRAL THERAPY
  8. ABACAVIR [Concomitant]
     Indication: ANTIRETROVIRAL THERAPY
  9. EFAVIRENZ [Concomitant]
     Indication: ANTIRETROVIRAL THERAPY
  10. GABAPENTIN [Concomitant]
     Indication: PAIN

REACTIONS (3)
  - BLOOD TESTOSTERONE DECREASED [None]
  - ERECTILE DYSFUNCTION [None]
  - SEX HORMONE BINDING GLOBULIN DECREASED [None]
